FAERS Safety Report 7554420-7 (Version None)
Quarter: 2011Q2

REPORT INFORMATION
  Report Type: 
  Country: None (occurrence: None)
  Receive Date: 20110617
  Receipt Date: 20110527
  Transmission Date: 20111010
  Serious: Yes (Death)
  Sender: FDA-Public Use
  Company Number: A0838193A

PATIENT
  Age: 58 Year
  Sex: Male
  Weight: 106.4 kg

DRUGS (17)
  1. TOPROL-XL [Concomitant]
  2. LIPITOR [Concomitant]
  3. DYAZIDE [Concomitant]
  4. METFORMIN HCL [Concomitant]
  5. NEURONTIN [Concomitant]
  6. ASPIRIN [Concomitant]
  7. VERPAMIL HCL [Concomitant]
  8. NITROTAB [Concomitant]
  9. ALLOPURINOL [Concomitant]
  10. NABUMETONE [Concomitant]
  11. LASIX [Concomitant]
  12. ISOSORBIDE [Concomitant]
  13. ACCUPRIL [Concomitant]
  14. FUROSEMIDE [Concomitant]
  15. K-TAB [Concomitant]
  16. AVANDIA [Suspect]
     Dosage: 8MG PER DAY
     Route: 065
     Dates: start: 19991101, end: 20060408
  17. ALLEGRA [Concomitant]

REACTIONS (2)
  - MYOCARDIAL INFARCTION [None]
  - ARRHYTHMIA [None]
